FAERS Safety Report 21967894 (Version 9)
Quarter: 2024Q1

REPORT INFORMATION
  Report Type: Spontaneous
  Country: US (occurrence: US)
  Receive Date: 20230208
  Receipt Date: 20240215
  Transmission Date: 20240410
  Serious: No
  Sender: FDA-Public Use
  Company Number: US-PFIZER INC-202300053943

PATIENT
  Age: 71 Year
  Sex: Female
  Weight: 64.41 kg

DRUGS (2)
  1. PREMARIN [Suspect]
     Active Substance: ESTROGENS, CONJUGATED
     Indication: Osteoporosis
     Dosage: UNK
     Dates: start: 1995
  2. PREMARIN [Suspect]
     Active Substance: ESTROGENS, CONJUGATED
     Dosage: 0.45 MG

REACTIONS (4)
  - Osteoporosis [Recovering/Resolving]
  - Body height decreased [Unknown]
  - Nasopharyngitis [Unknown]
  - Sinus disorder [Not Recovered/Not Resolved]
